FAERS Safety Report 23951724 (Version 2)
Quarter: 2024Q3

REPORT INFORMATION
  Report Type: Spontaneous
  Country: GB (occurrence: GB)
  Receive Date: 20240607
  Receipt Date: 20240705
  Transmission Date: 20241016
  Serious: Yes (Death, Hospitalization)
  Sender: AEGERION
  Company Number: GB-AMRYT PHARMACEUTICALS DAC-AEGR006750

PATIENT

DRUGS (1)
  1. METRELEPTIN [Suspect]
     Active Substance: METRELEPTIN
     Indication: Product used for unknown indication
     Dosage: 3 MILLIGRAM, BID
     Route: 042
     Dates: start: 201903

REACTIONS (2)
  - Death [Fatal]
  - Ill-defined disorder [Unknown]
